FAERS Safety Report 7806636-X (Version None)
Quarter: 2011Q4

REPORT INFORMATION
  Report Type: 
  Country: None (occurrence: None)
  Receive Date: 20111011
  Receipt Date: 20111003
  Transmission Date: 20120403
  Serious: Yes (Other)
  Sender: FDA-Public Use
  Company Number: IE-JNJFOC-20110908881

PATIENT
  Age: 6 Decade
  Sex: Female

DRUGS (8)
  1. LAMOTRIGINE [Concomitant]
     Indication: AFFECTIVE DISORDER
     Route: 065
  2. BIPERIDEN [Concomitant]
     Indication: EXTRAPYRAMIDAL DISORDER
     Route: 048
  3. NEXIUM [Concomitant]
     Indication: GASTROOESOPHAGEAL REFLUX DISEASE
     Route: 065
  4. PALIPERIDONE [Suspect]
     Route: 030
     Dates: start: 20110826, end: 20110902
  5. TRIFLUOPERAZINE HCL [Concomitant]
     Indication: PSYCHOTIC DISORDER
     Route: 065
  6. PALIPERIDONE [Suspect]
     Indication: SCHIZOPHRENIA
     Route: 030
     Dates: start: 20110902
  7. VALPROATE SODIUM [Concomitant]
     Route: 065
  8. LAMISIL [Concomitant]
     Route: 065

REACTIONS (2)
  - INCORRECT DOSE ADMINISTERED [None]
  - SEDATION [None]
